FAERS Safety Report 10218655 (Version 1)
Quarter: 2014Q2

REPORT INFORMATION
  Report Type: Spontaneous
  Country: US (occurrence: US)
  Receive Date: 20140605
  Receipt Date: 20140605
  Transmission Date: 20141212
  Serious: No
  Sender: FDA-Public Use
  Company Number: US-PFIZER INC-2014153072

PATIENT
  Age: 75 Year
  Sex: Female
  Weight: 73.02 kg

DRUGS (2)
  1. CHANTIX [Suspect]
     Indication: SMOKING CESSATION THERAPY
     Dosage: UNK
  2. CHANTIX [Suspect]
     Dosage: 0.5 MG, DAILY
     Dates: start: 20140530

REACTIONS (1)
  - Constipation [Unknown]
